FAERS Safety Report 13656933 (Version 1)
Quarter: 2017Q2

REPORT INFORMATION
  Report Type: Spontaneous
  Country: CN (occurrence: CN)
  Receive Date: 20170615
  Receipt Date: 20170615
  Transmission Date: 20170830
  Serious: Yes (Hospitalization)
  Sender: FDA-Public Use
  Company Number: CN-BAYER-2017-107863

PATIENT
  Age: 74 Year
  Sex: Female
  Weight: 54.97 kg

DRUGS (5)
  1. GLUCOBAY [Suspect]
     Active Substance: ACARBOSE
     Indication: BLOOD GLUCOSE INCREASED
     Dosage: 0.1 G, TID
     Route: 048
     Dates: start: 20160701, end: 20170224
  2. AMARYL [Suspect]
     Active Substance: GLIMEPIRIDE
     Indication: BLOOD GLUCOSE INCREASED
     Dosage: 1 MG, QD
     Route: 048
     Dates: start: 20160701, end: 20170224
  3. GLUCOPHAGE [Suspect]
     Active Substance: METFORMIN HYDROCHLORIDE
     Indication: BLOOD GLUCOSE INCREASED
     Dosage: 0.5 G, BID
     Route: 048
     Dates: start: 20160701, end: 20170224
  4. NOVONORM [Concomitant]
     Active Substance: REPAGLINIDE
     Dosage: 1.5-1-1 MG TID
     Route: 048
  5. LANTUS [Concomitant]
     Active Substance: INSULIN GLARGINE
     Dosage: 6 U, ONCE EVERY NIGHT

REACTIONS (2)
  - Blood glucose decreased [Recovering/Resolving]
  - Syncope [Recovering/Resolving]

NARRATIVE: CASE EVENT DATE: 20170223
